FAERS Safety Report 25619118 (Version 1)
Quarter: 2025Q3

REPORT INFORMATION
  Report Type: Spontaneous
  Country: EU (occurrence: EU)
  Receive Date: 20250729
  Receipt Date: 20250729
  Transmission Date: 20251021
  Serious: Yes (Death)
  Sender: MYLAN
  Company Number: EU-ROCHE-10000330055

PATIENT
  Age: 20 Year
  Sex: Female

DRUGS (44)
  1. MYCOPHENOLATE MOFETIL [Suspect]
     Active Substance: MYCOPHENOLATE MOFETIL
     Indication: Prophylaxis against graft versus host disease
     Dosage: 1000 MILLIGRAM, BID
  2. MYCOPHENOLATE MOFETIL [Suspect]
     Active Substance: MYCOPHENOLATE MOFETIL
     Dosage: 1000 MILLIGRAM, BID
     Route: 065
  3. MYCOPHENOLATE MOFETIL [Suspect]
     Active Substance: MYCOPHENOLATE MOFETIL
     Dosage: 1000 MILLIGRAM, BID
     Route: 065
  4. MYCOPHENOLATE MOFETIL [Suspect]
     Active Substance: MYCOPHENOLATE MOFETIL
     Dosage: 1000 MILLIGRAM, BID
  5. CYCLOPHOSPHAMIDE [Suspect]
     Active Substance: CYCLOPHOSPHAMIDE
     Indication: Prophylaxis against graft versus host disease
  6. CYCLOPHOSPHAMIDE [Suspect]
     Active Substance: CYCLOPHOSPHAMIDE
     Route: 065
  7. CYCLOPHOSPHAMIDE [Suspect]
     Active Substance: CYCLOPHOSPHAMIDE
     Route: 065
  8. CYCLOPHOSPHAMIDE [Suspect]
     Active Substance: CYCLOPHOSPHAMIDE
  9. CYCLOSPORINE [Suspect]
     Active Substance: CYCLOSPORINE
     Indication: Prophylaxis against graft versus host disease
  10. CYCLOSPORINE [Suspect]
     Active Substance: CYCLOSPORINE
     Route: 065
  11. CYCLOSPORINE [Suspect]
     Active Substance: CYCLOSPORINE
     Route: 065
  12. CYCLOSPORINE [Suspect]
     Active Substance: CYCLOSPORINE
  13. NIRMATRELVIR [Concomitant]
     Active Substance: NIRMATRELVIR
  14. NIRMATRELVIR [Concomitant]
     Active Substance: NIRMATRELVIR
     Route: 065
  15. NIRMATRELVIR [Concomitant]
     Active Substance: NIRMATRELVIR
     Route: 065
  16. NIRMATRELVIR [Concomitant]
     Active Substance: NIRMATRELVIR
  17. REMDESIVIR [Concomitant]
     Active Substance: REMDESIVIR
  18. REMDESIVIR [Concomitant]
     Active Substance: REMDESIVIR
     Route: 065
  19. REMDESIVIR [Concomitant]
     Active Substance: REMDESIVIR
     Route: 065
  20. REMDESIVIR [Concomitant]
     Active Substance: REMDESIVIR
  21. MEROPENEM [Concomitant]
     Active Substance: MEROPENEM
  22. MEROPENEM [Concomitant]
     Active Substance: MEROPENEM
     Route: 065
  23. MEROPENEM [Concomitant]
     Active Substance: MEROPENEM
     Route: 065
  24. MEROPENEM [Concomitant]
     Active Substance: MEROPENEM
  25. VANCOMYCIN [Concomitant]
     Active Substance: VANCOMYCIN
  26. VANCOMYCIN [Concomitant]
     Active Substance: VANCOMYCIN
     Route: 065
  27. VANCOMYCIN [Concomitant]
     Active Substance: VANCOMYCIN
     Route: 065
  28. VANCOMYCIN [Concomitant]
     Active Substance: VANCOMYCIN
  29. AMPHOTERICIN B [Concomitant]
     Active Substance: AMPHOTERICIN B
  30. AMPHOTERICIN B [Concomitant]
     Active Substance: AMPHOTERICIN B
     Route: 065
  31. AMPHOTERICIN B [Concomitant]
     Active Substance: AMPHOTERICIN B
     Route: 065
  32. AMPHOTERICIN B [Concomitant]
     Active Substance: AMPHOTERICIN B
  33. RUXOLITINIB [Concomitant]
     Active Substance: RUXOLITINIB
  34. RUXOLITINIB [Concomitant]
     Active Substance: RUXOLITINIB
     Route: 065
  35. RUXOLITINIB [Concomitant]
     Active Substance: RUXOLITINIB
     Route: 065
  36. RUXOLITINIB [Concomitant]
     Active Substance: RUXOLITINIB
  37. OCTREOTIDE [Concomitant]
     Active Substance: OCTREOTIDE
  38. OCTREOTIDE [Concomitant]
     Active Substance: OCTREOTIDE
     Route: 065
  39. OCTREOTIDE [Concomitant]
     Active Substance: OCTREOTIDE
     Route: 065
  40. OCTREOTIDE [Concomitant]
     Active Substance: OCTREOTIDE
  41. DEFIBROTIDE [Concomitant]
     Active Substance: DEFIBROTIDE (BOVINE)
  42. DEFIBROTIDE [Concomitant]
     Active Substance: DEFIBROTIDE (BOVINE)
     Route: 065
  43. DEFIBROTIDE [Concomitant]
     Active Substance: DEFIBROTIDE (BOVINE)
     Route: 065
  44. DEFIBROTIDE [Concomitant]
     Active Substance: DEFIBROTIDE (BOVINE)

REACTIONS (5)
  - Encephalopathy [Fatal]
  - Bronchopulmonary aspergillosis [Fatal]
  - Rhinovirus infection [Fatal]
  - Enterococcal infection [Fatal]
  - Lactobacillus bacteraemia [Fatal]
